FAERS Safety Report 22522492 (Version 1)
Quarter: 2023Q2

REPORT INFORMATION
  Report Type: Spontaneous
  Country: FR (occurrence: FR)
  Receive Date: 20230605
  Receipt Date: 20230605
  Transmission Date: 20230722
  Serious: Yes (Other)
  Sender: FDA-Public Use
  Company Number: None

PATIENT
  Age: 40 Year
  Sex: Male

DRUGS (8)
  1. ALPRAZOLAM [Suspect]
     Active Substance: ALPRAZOLAM
     Indication: Product used for unknown indication
     Dosage: UNK (DE 3 A 10 CPS DE 0.25 MG/J)
     Route: 045
  2. ALPRAZOLAM [Suspect]
     Active Substance: ALPRAZOLAM
     Dosage: UNK (DE 3 A 10 CPS DE 0.25 MG/J)
     Route: 048
  3. METHADONE [Suspect]
     Active Substance: METHADONE HYDROCHLORIDE
     Indication: Product used for unknown indication
     Dosage: 120 MG, QD (120 MG/J)
     Route: 048
     Dates: start: 2007
  4. COCAINE [Suspect]
     Active Substance: COCAINE
     Indication: Product used for unknown indication
     Dosage: UNK (JUSQU A 3 G/24H)
     Route: 042
     Dates: start: 2020
  5. COCAINE [Suspect]
     Active Substance: COCAINE
     Dosage: UNK (JUSQU A 3 G/24H)
     Route: 045
     Dates: start: 2020
  6. HEROIN [Suspect]
     Active Substance: DIAMORPHINE
     Indication: Product used for unknown indication
     Dosage: UNK (JUSQU A 3 GH/)
     Route: 045
  7. HEROIN [Suspect]
     Active Substance: DIAMORPHINE
     Dosage: UNK (JUSQU A 3 GH/)
     Route: 042
  8. ALCOHOL [Suspect]
     Active Substance: ALCOHOL
     Indication: Product used for unknown indication
     Dosage: UNK (2 BIERES /J)
     Route: 048

REACTIONS (3)
  - Drug dependence [Not Recovered/Not Resolved]
  - Product use in unapproved indication [Not Recovered/Not Resolved]
  - Product use issue [Not Recovered/Not Resolved]
